FAERS Safety Report 15614383 (Version 4)
Quarter: 2019Q2

REPORT INFORMATION
  Report Type: Spontaneous
  Country: US (occurrence: US)
  Receive Date: 20181113
  Receipt Date: 20190502
  Transmission Date: 20190711
  Serious: No
  Sender: FDA-Public Use
  Company Number: US-PFIZER INC-2018132001

PATIENT
  Age: 50 Year
  Sex: Female

DRUGS (27)
  1. COMPAZINE [PROCHLORPERAZINE EDISYLATE] [Concomitant]
     Active Substance: PROCHLORPERAZINE EDISYLATE
  2. INDERAL [Concomitant]
     Active Substance: PROPRANOLOL HYDROCHLORIDE
  3. TOBRADEX [Concomitant]
     Active Substance: DEXAMETHASONE\TOBRAMYCIN
  4. DOCETAXEL. [Suspect]
     Active Substance: DOCETAXEL
     Dosage: 86 MG, EVERY 3 WEEKS (9 CYCLES)
     Dates: end: 20160111
  5. TAXOTERE [Suspect]
     Active Substance: DOCETAXEL
     Indication: BREAST CANCER FEMALE
     Dosage: 128 MG, EVERY 3 WEEKS (9 CYCLES)
     Dates: start: 20150828
  6. LOTENSIN [TIMOLOL MALEATE] [Concomitant]
     Dosage: UNK
     Dates: end: 20170508
  7. ARMOUR THYROID [Concomitant]
     Active Substance: THYROID, PORCINE
     Indication: THYROID DISORDER
     Dosage: UNK
     Dates: end: 20170509
  8. TYLENOL 8HR [Concomitant]
     Active Substance: ACETAMINOPHEN
  9. REFRESH PLUS [Concomitant]
     Active Substance: CARBOXYMETHYLCELLULOSE SODIUM
  10. PARAPLATIN [Concomitant]
     Active Substance: CARBOPLATIN
     Indication: BREAST CANCER FEMALE
     Dosage: UNK
  11. PHENERGAN [Concomitant]
     Active Substance: PROMETHAZINE HYDROCHLORIDE
  12. MAXALT [Concomitant]
     Active Substance: RIZATRIPTAN BENZOATE
  13. TAXOTERE [Suspect]
     Active Substance: DOCETAXEL
     Dosage: 102 MG, EVERY 3 WEEKS (9 CYCLES)
  14. REFRESH PM [PARAFFIN, LIQUID;WHITE SOFT PARAFFIN] [Concomitant]
     Dosage: UNK
  15. ZOFRAN [Concomitant]
     Active Substance: ONDANSETRON HYDROCHLORIDE
  16. DOCETAXEL. [Suspect]
     Active Substance: DOCETAXEL
     Indication: BREAST CANCER FEMALE
     Dosage: 128 MG, EVERY 3 WEEKS (9 CYCLES)
     Dates: start: 20150828
  17. TAXOTERE [Suspect]
     Active Substance: DOCETAXEL
     Dosage: 86 MG, EVERY 3 WEEKS (9 CYCLES)
     Dates: end: 20160111
  18. TAMOXIFEN [Concomitant]
     Active Substance: TAMOXIFEN
     Dosage: UNK
     Dates: start: 20160610
  19. MELATONIN [Concomitant]
     Active Substance: MELATONIN
  20. NEURONTIN [Concomitant]
     Active Substance: GABAPENTIN
  21. AMBIEN [Concomitant]
     Active Substance: ZOLPIDEM TARTRATE
  22. CARBOPLATIN. [Concomitant]
     Active Substance: CARBOPLATIN
     Indication: BREAST CANCER FEMALE
     Dosage: UNK
  23. CATAPRES [Concomitant]
     Active Substance: CLONIDINE HYDROCHLORIDE
  24. LOTEMAX [Concomitant]
     Active Substance: LOTEPREDNOL ETABONATE
  25. DOCETAXEL. [Suspect]
     Active Substance: DOCETAXEL
     Dosage: 102 MG, EVERY 3 WEEKS (9 CYCLES)
  26. HERCEPTIN [Concomitant]
     Active Substance: TRASTUZUMAB
  27. TOPAMAX [Concomitant]
     Active Substance: TOPIRAMATE
     Dosage: UNK
     Dates: start: 20150810, end: 20170907

REACTIONS (5)
  - Alopecia [Not Recovered/Not Resolved]
  - Alopecia scarring [Not Recovered/Not Resolved]
  - Hair disorder [Not Recovered/Not Resolved]
  - Hair colour changes [Not Recovered/Not Resolved]
  - Hair texture abnormal [Not Recovered/Not Resolved]

NARRATIVE: CASE EVENT DATE: 20160110
